FAERS Safety Report 9033130 (Version 1)
Quarter: 2013Q1

REPORT INFORMATION
  Report Type: Spontaneous
  Country: US (occurrence: US)
  Receive Date: 20130128
  Receipt Date: 20130128
  Transmission Date: 20140127
  Serious: No
  Sender: FDA-Public Use
  Company Number: US-MYLANLABS-2012S1012249

PATIENT
  Age: 29 Year
  Sex: Female

DRUGS (2)
  1. PHENYTOIN [Suspect]
     Indication: GRAND MAL CONVULSION
     Route: 065
  2. VALPROIC ACID [Suspect]
     Indication: GRAND MAL CONVULSION
     Route: 065

REACTIONS (1)
  - Gingival hypertrophy [Recovering/Resolving]
